FAERS Safety Report 18439259 (Version 2)
Quarter: 2020Q4

REPORT INFORMATION
  Report Type: Spontaneous
  Country: DE (occurrence: DE)
  Receive Date: 20201029
  Receipt Date: 20201210
  Transmission Date: 20210114
  Serious: No
  Sender: FDA-Public Use
  Company Number: DE-LUPIN PHARMACEUTICALS INC.-2020-07805

PATIENT
  Age: 78 Year
  Sex: Male

DRUGS (4)
  1. DOXYCYCLINE. [Suspect]
     Active Substance: DOXYCYCLINE
     Indication: SCROTAL ERYTHEMA
     Dosage: 100 MILLIGRAM, BID
     Route: 065
  2. CICLOPIROX OLAMINE. [Concomitant]
     Active Substance: CICLOPIROX OLAMINE
     Indication: SCROTAL DERMATITIS
     Dosage: UNK UNK, QD (IN THE MORNING)
     Route: 065
  3. DOXYCYCLINE. [Suspect]
     Active Substance: DOXYCYCLINE
     Indication: SCROTAL DISORDER
  4. GABAPENTIN. [Concomitant]
     Active Substance: GABAPENTIN
     Indication: SYMPTOMATIC TREATMENT
     Dosage: 300 MILLIGRAM, QD
     Route: 065

REACTIONS (1)
  - Off label use [Unknown]
